FAERS Safety Report 7239828-1 (Version None)
Quarter: 2011Q1

REPORT INFORMATION
  Report Type: 
  Country: None (occurrence: None)
  Receive Date: 20110122
  Receipt Date: 20101202
  Transmission Date: 20110831
  Serious: No
  Sender: FDA-Public Use
  Company Number: US-ALLERGAN-1015556US

PATIENT
  Age: 55 Year
  Sex: Female

DRUGS (3)
  1. LATISSE [Suspect]
     Indication: GROWTH OF EYELASHES
     Dosage: 1 UNK, UNKNOWN
     Dates: end: 20100401
  2. HORMONE THERAPY [Concomitant]
     Indication: MENOPAUSE
     Dosage: UNK
  3. LATISSE [Suspect]

REACTIONS (3)
  - INCORRECT DOSE ADMINISTERED [None]
  - FOREIGN BODY SENSATION IN EYES [None]
  - SCLERAL HYPERAEMIA [None]
